FAERS Safety Report 9575815 (Version 1)
Quarter: 2013Q4

REPORT INFORMATION
  Report Type: Spontaneous
  Country: US (occurrence: US)
  Receive Date: 20131001
  Receipt Date: 20131001
  Transmission Date: 20140711
  Serious: No
  Sender: FDA-Public Use
  Company Number: US-AMGEN-USASP2012082539

PATIENT
  Age: 64 Year
  Sex: Female

DRUGS (2)
  1. PROCRIT [Suspect]
     Indication: HYPERTENSION
     Dosage: UNK
  2. TELAPREVIR [Concomitant]
     Indication: HEPATITIS C
     Dosage: UNK

REACTIONS (2)
  - Fall [Unknown]
  - Dizziness [Unknown]
